FAERS Safety Report 23108315 (Version 2)
Quarter: 2023Q4

REPORT INFORMATION
  Report Type: Spontaneous
  Country: US (occurrence: US)
  Receive Date: 20231026
  Receipt Date: 20231204
  Transmission Date: 20240110
  Serious: Yes (Death, Other)
  Sender: FDA-Public Use
  Company Number: US-BRISTOL-MYERS SQUIBB COMPANY-2023-151941

PATIENT
  Age: 85 Year
  Sex: Male

DRUGS (10)
  1. ELIQUIS [Suspect]
     Active Substance: APIXABAN
     Indication: Atrial fibrillation
     Route: 048
     Dates: end: 20230916
  2. ELIQUIS [Suspect]
     Active Substance: APIXABAN
     Dosage: MORNING AND EVENING
     Route: 048
     Dates: end: 20230913
  3. LIPITOR [Concomitant]
     Active Substance: ATORVASTATIN CALCIUM
     Indication: Product used for unknown indication
     Dosage: TAKE 1 TABLET BY MOUTH EVERY EVENING
     Route: 048
     Dates: end: 20230912
  4. CARDIZEM CD [Concomitant]
     Active Substance: DILTIAZEM HYDROCHLORIDE
     Indication: Product used for unknown indication
     Dosage: DILTIAZEM (CARDIZEM CD) 180 MG CAPSULE. SUSTAINED RELEASE 24 HOUR - TAKE 1 CAPSULE BY MOUTH EVERY EV
     Route: 048
     Dates: end: 20230912
  5. DRISDOL [Concomitant]
     Active Substance: ERGOCALCIFEROL
     Indication: Product used for unknown indication
     Dosage: ERGOCALCIFEROL (VITAMIN D2) (DRISDOL) 1250 MCG (50000 UNIT) CAPSULE- TAKE 1 CAPSULE (50000 UNITS) BY
     Route: 048
  6. FERROUS SULFATE [Concomitant]
     Active Substance: FERROUS SULFATE
     Indication: Product used for unknown indication
     Dosage: FERROUS SULFATE 325 MG (65 MG IRON) TABLET (FEOSOL)- TAKE 1 TABLET BY MOUTH EVERY OTHER DAY (MORNING
     Route: 048
     Dates: end: 20230913
  7. LASIX [Concomitant]
     Active Substance: FUROSEMIDE
     Indication: Product used for unknown indication
     Dosage: FUROSEMIDE 40 MG TABLET (LASIX)- TAKE 1 TABLET BY MOUTH ONCE A DAY (MORNING)
     Route: 048
     Dates: end: 20230912
  8. PRINIVIL [Concomitant]
     Active Substance: LISINOPRIL
     Indication: Product used for unknown indication
     Dosage: LISINPRIL 40 MG TABLET (PRINIVIL)- TAKE 1 TABLET BY MOUTH ONCE A DAY (MORNING)
     Route: 048
  9. TOPROL XL [Concomitant]
     Active Substance: METOPROLOL SUCCINATE
     Indication: Product used for unknown indication
     Dosage: METOPROLOL SUCCINATE 100 MG TABLET SUSTAINED RELEASE 24 HR (TOPROL-XL)- TAKE 1 TABLET BY MOUTH ONCE
     Route: 048
     Dates: end: 20230913
  10. K DUR [Concomitant]
     Indication: Product used for unknown indication
     Dosage: POTASSIUM CHLORIDE 20 MEQ TABLET SUSTAINED RELEASE. PARTICLE/CRYSTAL (K-DUR)- TAKE 1 TABLET BY MOUTH
     Route: 048
     Dates: end: 20230913

REACTIONS (1)
  - Death [Fatal]

NARRATIVE: CASE EVENT DATE: 20230916
